FAERS Safety Report 13415018 (Version 2)
Quarter: 2017Q2

REPORT INFORMATION
  Report Type: Spontaneous
  Country: JP (occurrence: JP)
  Receive Date: 20170407
  Receipt Date: 20170414
  Transmission Date: 20170830
  Serious: No
  Sender: FDA-Public Use
  Company Number: JP-GLAXOSMITHKLINE-JP2017JPN046613

PATIENT
  Age: 8 Decade
  Sex: Male

DRUGS (1)
  1. SAMITREL [Suspect]
     Active Substance: ATOVAQUONE
     Indication: ANTIFUNGAL PROPHYLAXIS
     Dosage: 5 ML, BID
     Route: 048
     Dates: start: 201703

REACTIONS (1)
  - Inappropriate schedule of drug administration [Unknown]
